FAERS Safety Report 9280092 (Version 2)
Quarter: 2013Q2

REPORT INFORMATION
  Report Type: Report from Study
  Country: JP (occurrence: JP)
  Receive Date: 20130509
  Receipt Date: 20130514
  Transmission Date: 20140414
  Serious: Yes (Other)
  Sender: FDA-Public Use
  Company Number: JP-JNJFOC-20130500598

PATIENT
  Age: 82 Year
  Sex: Male
  Weight: 52 kg

DRUGS (14)
  1. REMINYL [Suspect]
     Indication: DEMENTIA ALZHEIMER^S TYPE
     Route: 048
     Dates: start: 20120912, end: 20121009
  2. REMINYL [Suspect]
     Indication: DEMENTIA ALZHEIMER^S TYPE
     Route: 048
     Dates: start: 20120816, end: 20120911
  3. REMINYL [Suspect]
     Indication: DEMENTIA ALZHEIMER^S TYPE
     Route: 048
     Dates: start: 20121010
  4. ASPIRIN [Concomitant]
     Indication: PROPHYLAXIS
     Route: 048
  5. HYPERTENSION MEDICATION [Concomitant]
     Indication: HYPERTENSION
     Route: 048
  6. BENZBROMARONE [Concomitant]
     Indication: HYPERURICAEMIA
     Route: 048
  7. ALFACALCIDOL [Concomitant]
     Indication: OSTEOPOROSIS
     Route: 048
  8. PROPIVERINE HYDROCHLORIDE [Concomitant]
     Indication: URINARY INCONTINENCE
     Route: 048
  9. MAGNESIUM OXIDE [Concomitant]
     Indication: PROPHYLAXIS
     Route: 048
  10. ANTIBIOTIC-RESISTANT LACTIC ACID BACTERIAE [Concomitant]
     Indication: PROPHYLAXIS
     Route: 048
  11. MS ONSHIPPU [Concomitant]
     Indication: BACK PAIN
     Route: 062
  12. MOHRUS [Concomitant]
     Indication: BACK PAIN
     Route: 062
  13. SUMILU [Concomitant]
     Indication: BACK PAIN
     Route: 062
  14. SELBEX [Concomitant]
     Indication: PROPHYLAXIS
     Route: 048
     Dates: start: 20120927, end: 20121010

REACTIONS (2)
  - Spinal compression fracture [Recovering/Resolving]
  - Fall [Recovering/Resolving]
